FAERS Safety Report 4535168-X (Version None)
Quarter: 2004Q4

REPORT INFORMATION
  Report Type: 
  Country: None (occurrence: None)
  Receive Date: 20041222
  Receipt Date: 20040412
  Transmission Date: 20050328
  Serious: No
  Sender: FDA-Public Use
  Company Number: US-BRISTOL-MYERS SQUIBB COMPANY-12557757

PATIENT
  Sex: Female

DRUGS (2)
  1. DOVONEX [Suspect]
     Dosage: BOYFRIEND APPLIED TO PENIS IN THE EARLY AM WHEN NEEDED FOR PSORIASIS STARTING ONE YEAR AGO
     Route: 067
  2. PLAQUENIL [Concomitant]

REACTIONS (1)
  - SMEAR CERVIX ABNORMAL [None]
